FAERS Safety Report 7074774-8 (Version None)
Quarter: 2010Q4

REPORT INFORMATION
  Report Type: 
  Country: None (occurrence: None)
  Receive Date: 20101029
  Receipt Date: 20101026
  Transmission Date: 20110411
  Serious: Yes (Hospitalization)
  Sender: FDA-Public Use
  Company Number: US-WYE-H18009910

PATIENT
  Sex: Male
  Weight: 76.27 kg

DRUGS (26)
  1. TYGACIL [Suspect]
     Indication: COLITIS
     Route: 042
     Dates: start: 20100901, end: 20100920
  2. VANCOMYCIN [Concomitant]
     Dosage: UNKNOWN
     Route: 048
  3. DILANTIN [Concomitant]
     Dosage: UNKNOWN
     Route: 042
  4. PHENOBARBITAL [Concomitant]
     Dosage: UNKNOWN
     Route: 042
  5. OS-CAL [Concomitant]
     Route: 048
  6. BUMEX [Concomitant]
     Route: 048
  7. SINGULAIR [Concomitant]
     Route: 048
  8. MOBIC [Concomitant]
     Route: 048
  9. COGENTIN [Concomitant]
     Route: 048
  10. POTASSIUM CHLORIDE [Concomitant]
     Route: 048
  11. DURAGESIC-100 [Concomitant]
     Route: 062
  12. BACLOFEN [Concomitant]
     Route: 048
  13. MULTI-VITAMINS [Concomitant]
     Dosage: 1 DAILY
     Route: 048
  14. REGLAN [Concomitant]
  15. PRILOSEC [Concomitant]
  16. FLONASE [Concomitant]
     Dosage: 1 SPRAY EACH NOSTRIL DAILY
  17. SENOKOT [Concomitant]
     Route: 048
  18. LORTAB [Concomitant]
     Route: 048
  19. LYRICA [Concomitant]
  20. ENULOSE [Concomitant]
     Route: 048
  21. PHENOBARBITAL [Concomitant]
     Route: 048
  22. CELEXA [Concomitant]
     Route: 048
  23. DILANTIN [Concomitant]
     Route: 048
  24. FERROUS SULFATE [Concomitant]
     Route: 048
  25. DUONEB [Concomitant]
     Dosage: 4 TIMES PER DAY
  26. LASIX [Concomitant]
     Dosage: UNKNOWN
     Route: 065

REACTIONS (3)
  - ALANINE AMINOTRANSFERASE INCREASED [None]
  - BLOOD BILIRUBIN INCREASED [None]
  - CHOLELITHIASIS [None]
